FAERS Safety Report 6979264-6 (Version None)
Quarter: 2010Q3

REPORT INFORMATION
  Report Type: 
  Country: None (occurrence: None)
  Receive Date: 20100913
  Receipt Date: 20100901
  Transmission Date: 20110219
  Serious: Yes (Hospitalization)
  Sender: FDA-Public Use
  Company Number: JP-AMGEN-QUU437251

PATIENT
  Age: 52 Year
  Sex: Female

DRUGS (4)
  1. ENBREL [Suspect]
     Indication: RHEUMATOID ARTHRITIS
     Dosage: DOSE UNKNOWN
     Route: 058
     Dates: start: 20100401, end: 20100404
  2. MIZORIBINE [Concomitant]
     Indication: RHEUMATOID ARTHRITIS
     Dosage: DOSE UNKNOWN
     Route: 048
     Dates: start: 19940101
  3. PREDNISOLONE [Concomitant]
     Indication: RHEUMATOID ARTHRITIS
     Dosage: DOSE UNKNOWN
     Route: 048
     Dates: start: 19940101
  4. METHOTREXATE [Concomitant]
     Indication: RHEUMATOID ARTHRITIS
     Dosage: DOSE UNKNOWN
     Route: 048
     Dates: start: 19940101

REACTIONS (2)
  - CLOSTRIDIAL INFECTION [None]
  - PSEUDOMEMBRANOUS COLITIS [None]
